FAERS Safety Report 9258838 (Version 1)
Quarter: 2013Q2

REPORT INFORMATION
  Report Type: Spontaneous
  Country: US (occurrence: US)
  Receive Date: 20130426
  Receipt Date: 20130426
  Transmission Date: 20140414
  Serious: Yes (Hospitalization)
  Sender: FDA-Public Use
  Company Number: US-GLAXOSMITHKLINE-A1020509A

PATIENT
  Age: 70 Year
  Sex: Male

DRUGS (2)
  1. ADVAIR [Suspect]
     Indication: COUGH
     Dosage: 1PUFF PER DAY
     Route: 055
     Dates: start: 201302, end: 20130408
  2. PRILOSEC [Concomitant]

REACTIONS (14)
  - Dyspnoea [Not Recovered/Not Resolved]
  - Gastroenteritis viral [Not Recovered/Not Resolved]
  - Diarrhoea [Not Recovered/Not Resolved]
  - Vomiting [Not Recovered/Not Resolved]
  - Gastroenteritis viral [Not Recovered/Not Resolved]
  - Decreased appetite [Not Recovered/Not Resolved]
  - Anxiety [Not Recovered/Not Resolved]
  - Weight decreased [Not Recovered/Not Resolved]
  - Chromaturia [Not Recovered/Not Resolved]
  - Bedridden [Not Recovered/Not Resolved]
  - Respiratory tract irritation [Not Recovered/Not Resolved]
  - Blood pressure increased [Recovered/Resolved]
  - Respiratory disorder [Unknown]
  - Autoimmune disorder [Unknown]
